FAERS Safety Report 7010291-9 (Version None)
Quarter: 2010Q3

REPORT INFORMATION
  Report Type: 
  Country: None (occurrence: None)
  Receive Date: 20100923
  Receipt Date: 20100917
  Transmission Date: 20110219
  Serious: Yes (Hospitalization)
  Sender: FDA-Public Use
  Company Number: A0881694A

PATIENT
  Age: 77 Year
  Sex: Male

DRUGS (3)
  1. AVODART [Suspect]
     Indication: PROSTATIC DISORDER
     Dosage: 1CAP PER DAY
     Route: 048
     Dates: start: 20070212, end: 20100701
  2. SYNTHROID [Concomitant]
  3. LIPITOR [Concomitant]

REACTIONS (2)
  - BREAST ENLARGEMENT [None]
  - BREAST MASS [None]
